FAERS Safety Report 6135657-0 (Version None)
Quarter: 2009Q1

REPORT INFORMATION
  Report Type: 
  Country: None (occurrence: None)
  Receive Date: 20090327
  Receipt Date: 20081017
  Transmission Date: 20090719
  Serious: Yes (Hospitalization)
  Sender: FDA-Public Use
  Company Number: US-ASTRAZENECA-2008AC02751

PATIENT
  Age: 65 Year
  Sex: Male

DRUGS (2)
  1. LISINOPRIL [Suspect]
  2. IMMUNOSUPPRESSION [Concomitant]

REACTIONS (1)
  - SMALL BOWEL ANGIOEDEMA [None]
